FAERS Safety Report 7013288-8 (Version None)
Quarter: 2010Q3

REPORT INFORMATION
  Report Type: 
  Country: None (occurrence: None)
  Receive Date: 20100924
  Receipt Date: 20100913
  Transmission Date: 20110219
  Serious: Yes (Hospitalization)
  Sender: FDA-Public Use
  Company Number: PHHY2010FR61353

PATIENT
  Sex: Male

DRUGS (13)
  1. ESIDRIX [Suspect]
     Dosage: 25 MG PER DAY
     Route: 048
     Dates: end: 20100426
  2. RASILEZ [Suspect]
     Dosage: 300 MG, UNK
     Route: 048
     Dates: start: 20091030, end: 20100426
  3. NOVOMIX [Concomitant]
     Dosage: UNK
  4. BISOPROLOL FUMARATE [Concomitant]
     Dosage: 5 MG, UNK
  5. PLAVIX [Concomitant]
     Dosage: 75 MG, UNK
  6. KARDEGIC [Concomitant]
     Dosage: 160 MG, UNK
  7. AMLODIPINE [Concomitant]
     Dosage: UNK
  8. CRESTOR [Concomitant]
     Dosage: 5 MG, UNK
  9. NEXIUM [Concomitant]
     Dosage: 20 MG, UNK
  10. CEFIXIME [Concomitant]
     Dosage: UNK
  11. EFFERALGAN [Concomitant]
     Dosage: UNK
  12. DEXTROPROPOXYPHENE [Concomitant]
     Dosage: UNK
  13. ACETAMINOPHEN [Concomitant]
     Dosage: UNK

REACTIONS (4)
  - DEHYDRATION [None]
  - DIABETES MELLITUS INADEQUATE CONTROL [None]
  - PHARYNGITIS [None]
  - RENAL FAILURE ACUTE [None]
